FAERS Safety Report 9893266 (Version 1)
Quarter: 2014Q1

REPORT INFORMATION
  Report Type: Report from Study
  Country: US (occurrence: US)
  Receive Date: 20140213
  Receipt Date: 20140213
  Transmission Date: 20141002
  Serious: Yes (Death)
  Sender: FDA-Public Use
  Company Number: US-ROCHE-1328117

PATIENT
  Age: 62 Year
  Sex: Female

DRUGS (21)
  1. AVASTIN [Suspect]
     Indication: LUNG NEOPLASM MALIGNANT
     Dosage: PIGGYBACK, 15MG/KG
     Route: 042
     Dates: start: 20100212
  2. AVASTIN [Suspect]
     Indication: METASTASES TO LIVER
     Route: 042
     Dates: start: 20100329
  3. AVASTIN [Suspect]
     Route: 042
     Dates: start: 20100419
  4. AVASTIN [Suspect]
     Route: 042
     Dates: start: 20100618
  5. AVASTIN [Suspect]
     Route: 042
     Dates: start: 20100709
  6. XELODA [Suspect]
     Indication: PRODUCT USED FOR UNKNOWN INDICATION
     Route: 065
  7. ALOXI [Suspect]
     Indication: PRODUCT USED FOR UNKNOWN INDICATION
     Dosage: PUSH
     Route: 042
     Dates: start: 20100212
  8. CAMPTOSAR [Suspect]
     Indication: PRODUCT USED FOR UNKNOWN INDICATION
     Dosage: PIGGY BACK 50MG/M2
     Route: 042
     Dates: start: 20100212
  9. ATROPINE [Concomitant]
     Route: 042
  10. EMEND [Concomitant]
     Route: 048
  11. TYLENOL [Concomitant]
     Route: 048
     Dates: start: 20100212
  12. BENADRYL (UNITED STATES) [Concomitant]
     Route: 042
     Dates: start: 20100212
  13. TAXOTERE [Concomitant]
     Dosage: PIGGYBACK
     Route: 042
     Dates: start: 20100212
  14. PEPCID [Concomitant]
     Dosage: PIGGYBACK
     Route: 042
     Dates: start: 20100212
  15. SOLU-MEDROL [Concomitant]
     Route: 042
     Dates: start: 20100212
  16. NEULASTA [Concomitant]
     Route: 058
     Dates: start: 20100212
  17. ZOMETA [Concomitant]
     Dosage: PIGGYBACK
     Route: 042
     Dates: start: 20100212
  18. TAXOL [Concomitant]
  19. CARBOPLATIN [Concomitant]
  20. ALIMTA [Concomitant]
  21. ERBITUX [Concomitant]
     Dosage: PIGGYBACK
     Route: 042

REACTIONS (1)
  - Death [Fatal]
